FAERS Safety Report 19932981 (Version 2)
Quarter: 2022Q2

REPORT INFORMATION
  Report Type: Spontaneous
  Country: UY (occurrence: UY)
  Receive Date: 20211008
  Receipt Date: 20220624
  Transmission Date: 20220720
  Serious: Yes (Hospitalization)
  Sender: FDA-Public Use
  Company Number: UY-VIIV HEALTHCARE ULC-UY2021AMR207462

PATIENT

DRUGS (1)
  1. TRIUMEQ [Suspect]
     Active Substance: ABACAVIR SULFATE\DOLUTEGRAVIR SODIUM\LAMIVUDINE
     Indication: Antiretroviral therapy
     Dosage: UNK
     Dates: start: 2021, end: 2021

REACTIONS (3)
  - Discomfort [Unknown]
  - Weight decreased [Unknown]
  - Psychotic disorder [Recovered/Resolved]

NARRATIVE: CASE EVENT DATE: 20210101
